FAERS Safety Report 7824725-0 (Version None)
Quarter: 2011Q4

REPORT INFORMATION
  Report Type: 
  Country: None (occurrence: None)
  Receive Date: 20111019
  Receipt Date: 20111013
  Transmission Date: 20120403
  Serious: Yes (Hospitalization)
  Sender: FDA-Public Use
  Company Number: PHHY2011JP76079

PATIENT
  Sex: Male
  Weight: 61 kg

DRUGS (9)
  1. LEVOTHYROXINE SODIUM [Concomitant]
     Dosage: 50?G
     Route: 048
  2. GASLON [Concomitant]
     Dosage: 8 MG, UNK
     Route: 048
  3. NORVASC [Concomitant]
  4. FLIVAS [Concomitant]
  5. MICARDIS [Concomitant]
  6. SIMVASTATIN [Concomitant]
  7. SUTENT [Concomitant]
     Indication: RENAL CANCER
     Dosage: UNK UKN, UNK
     Route: 048
  8. PANTOSIN [Concomitant]
  9. ZOMETA [Suspect]
     Indication: METASTASES TO BONE
     Route: 041
     Dates: end: 20100701

REACTIONS (10)
  - HAEMORRHAGE [None]
  - UPPER EXTREMITY MASS [None]
  - FISTULA [None]
  - OSTEONECROSIS OF JAW [None]
  - SWELLING [None]
  - GINGIVAL ABSCESS [None]
  - ERYTHEMA [None]
  - PURULENCE [None]
  - INFLAMMATION [None]
  - EXPOSED BONE IN JAW [None]
